FAERS Safety Report 7999043-0 (Version None)
Quarter: 2011Q4

REPORT INFORMATION
  Report Type: 
  Country: None (occurrence: None)
  Receive Date: 20111221
  Receipt Date: 20111212
  Transmission Date: 20120403
  Serious: Yes (Hospitalization, Other)
  Sender: FDA-Public Use
  Company Number: PHHY2011JP109064

PATIENT
  Sex: Male
  Weight: 50 kg

DRUGS (11)
  1. ZOMETA [Suspect]
     Indication: METASTATIC RENAL CELL CARCINOMA
     Dosage: UNK
     Route: 041
     Dates: start: 20110627
  2. LANSOPRAZOLE [Concomitant]
     Dosage: 15 MG
     Route: 048
  3. PREDNISOLONE [Concomitant]
     Indication: METASTATIC RENAL CELL CARCINOMA
     Dosage: 5 MG,
     Route: 048
  4. LIMAPROST ALFADEX [Concomitant]
     Indication: METASTATIC RENAL CELL CARCINOMA
     Dosage: 15 UG,
     Route: 048
     Dates: start: 20110621, end: 20110901
  5. ETODOLAC [Suspect]
     Indication: METASTATIC RENAL CELL CARCINOMA
     Dosage: 400 MG, DAILY
     Route: 048
  6. ALLOPURINOL [Concomitant]
     Dosage: 100 MG,
     Route: 048
  7. AFINITOR [Suspect]
     Indication: METASTATIC RENAL CELL CARCINOMA
     Dosage: 10 MG, DAILY
     Route: 048
     Dates: start: 20110620, end: 20111003
  8. FLIVAS [Concomitant]
     Dosage: 50 MG,
     Route: 048
  9. BENIDIPINE HYDROCHLORIDE [Concomitant]
     Dosage: 4 MG,
     Route: 048
  10. METHYCOBAL [Concomitant]
     Indication: METASTATIC RENAL CELL CARCINOMA
     Dosage: 1500 UG, UNK
     Route: 048
     Dates: start: 20110621, end: 20110901
  11. LIMAPROST ALFADEX [Concomitant]
     Dosage: 5 UG,
     Route: 048

REACTIONS (2)
  - RENAL IMPAIRMENT [None]
  - C-REACTIVE PROTEIN INCREASED [None]
